FAERS Safety Report 21212654 (Version 1)
Quarter: 2022Q3

REPORT INFORMATION
  Report Type: Spontaneous
  Country: US (occurrence: None)
  Receive Date: 20220813
  Receipt Date: 20220813
  Transmission Date: 20221027
  Serious: Yes (Hospitalization, Other)
  Sender: FDA-Public Use
  Company Number: None

PATIENT
  Age: 50 Year
  Sex: Male
  Weight: 93.6 kg

DRUGS (3)
  1. CREST PRO-HEALTH (CETYLPYRIDINIUM CHLORIDE) [Suspect]
     Active Substance: CETYLPYRIDINIUM CHLORIDE
     Indication: Toothache
     Dates: start: 20220719, end: 20220719
  2. LISINOPRIL [Concomitant]
     Active Substance: LISINOPRIL
  3. Men^s MultiVitamin [Concomitant]

REACTIONS (11)
  - Feeding disorder [None]
  - Disturbance in attention [None]
  - Burning mouth syndrome [None]
  - Vomiting [None]
  - Haematochezia [None]
  - Dizziness [None]
  - Hyperhidrosis [None]
  - Impaired work ability [None]
  - Gastric haemorrhage [None]
  - Peptic ulcer [None]
  - Gastric disorder [None]

NARRATIVE: CASE EVENT DATE: 20220719
